FAERS Safety Report 16145530 (Version 1)
Quarter: 2019Q2

REPORT INFORMATION
  Report Type: Spontaneous
  Country: AF (occurrence: AF)
  Receive Date: 20190401
  Receipt Date: 20190401
  Transmission Date: 20190711
  Serious: Yes (Death)
  Sender: FDA-Public Use
  Company Number: None

PATIENT
  Age: 74 Year
  Sex: Male

DRUGS (9)
  1. TEMOZOLOMIDE. [Suspect]
     Active Substance: TEMOZOLOMIDE
     Indication: BRAIN NEOPLASM MALIGNANT
     Route: 048
     Dates: start: 20190304
  2. LORAZEPAM. [Concomitant]
     Active Substance: LORAZEPAM
  3. PROCHLORPER [Concomitant]
  4. VIMPAT [Concomitant]
     Active Substance: LACOSAMIDE
  5. ELIQUIS [Concomitant]
     Active Substance: APIXABAN
  6. LEVITIRACETAM [Concomitant]
     Active Substance: LEVETIRACETAM
  7. PHENYTOIN. [Concomitant]
     Active Substance: PHENYTOIN
  8. HYDROCHLOROT [Concomitant]
     Active Substance: HYDROCHLOROTHIAZIDE
  9. LOSARTAN POT [Concomitant]
     Active Substance: LOSARTAN POTASSIUM

REACTIONS (1)
  - Death [None]

NARRATIVE: CASE EVENT DATE: 20190314
